FAERS Safety Report 18868180 (Version 11)
Quarter: 2022Q2

REPORT INFORMATION
  Report Type: Spontaneous
  Country: US (occurrence: US)
  Receive Date: 20210209
  Receipt Date: 20220425
  Transmission Date: 20220721
  Serious: No
  Sender: FDA-Public Use
  Company Number: US-PHARMING-PHAUS2021000063

PATIENT

DRUGS (9)
  1. RUCONEST [Suspect]
     Active Substance: HUMAN C1-ESTERASE INHIBITOR
     Indication: Hereditary angioedema
     Dosage: 4200 IU, TWICE WEEKLY AND AS NEEDED
     Route: 042
     Dates: start: 20200622
  2. RUCONEST [Suspect]
     Active Substance: HUMAN C1-ESTERASE INHIBITOR
     Dosage: 4200 IU, TWICE WEEKLY AND AS NEEDED
     Route: 042
     Dates: start: 20200622
  3. RUCONEST [Suspect]
     Active Substance: HUMAN C1-ESTERASE INHIBITOR
     Dosage: 4200 IU, TWICE WEEKLY AND AS NEEDED
     Route: 042
     Dates: start: 20200622
  4. RUCONEST [Suspect]
     Active Substance: HUMAN C1-ESTERASE INHIBITOR
     Dosage: 4200 IU, TWICE WEEKLY AND AS NEEDED
     Route: 042
     Dates: start: 20200622
  5. RUCONEST [Suspect]
     Active Substance: HUMAN C1-ESTERASE INHIBITOR
     Dosage: 4200 IU, TWICE WEEKLY AND AS NEEDED
     Route: 042
     Dates: start: 20200622
  6. RUCONEST [Suspect]
     Active Substance: HUMAN C1-ESTERASE INHIBITOR
     Dosage: 4200 IU, TWICE WEEKLY AND PRN
     Route: 042
     Dates: start: 20200622
  7. RUCONEST [Suspect]
     Active Substance: HUMAN C1-ESTERASE INHIBITOR
     Dosage: 4200 IU, TWICE WEEKLY AND AS NEEDED
     Route: 042
     Dates: start: 20200622
  8. RUCONEST [Suspect]
     Active Substance: HUMAN C1-ESTERASE INHIBITOR
     Dosage: 4200 IU, TWICE WEEKLY AND AS NEEDED
     Route: 042
     Dates: start: 20200622
  9. RUCONEST [Suspect]
     Active Substance: HUMAN C1-ESTERASE INHIBITOR
     Dosage: 4200 IU, TWICE WEEKLY AND AS NEEDED
     Route: 042
     Dates: start: 20200909

REACTIONS (1)
  - Intentional product use issue [Unknown]
